FAERS Safety Report 12071209 (Version 1)
Quarter: 2016Q1

REPORT INFORMATION
  Report Type: Report from Study
  Country: DE (occurrence: DE)
  Receive Date: 20160211
  Receipt Date: 20160211
  Transmission Date: 20160526
  Serious: Yes (Hospitalization)
  Sender: FDA-Public Use
  Company Number: DE-ABBVIE-16P-062-1556878-00

PATIENT
  Age: 70 Year
  Sex: Female

DRUGS (2)
  1. VALORON [Concomitant]
     Active Substance: TILIDINE HYDROCHLORIDE
     Indication: PRODUCT USED FOR UNKNOWN INDICATION
  2. DUODOPA [Suspect]
     Active Substance: CARBIDOPA\LEVODOPA
     Indication: PARKINSON^S DISEASE
     Dosage: CURRENTLY DOSE ADJUSTMENT PHASE
     Route: 050
     Dates: start: 20160201

REACTIONS (2)
  - Therapy change [Unknown]
  - Incarcerated hernia [Recovering/Resolving]

NARRATIVE: CASE EVENT DATE: 20160206
